FAERS Safety Report 10464873 (Version 1)
Quarter: 2014Q3

REPORT INFORMATION
  Report Type: Spontaneous
  Country: FR (occurrence: FR)
  Receive Date: 20140919
  Receipt Date: 20140919
  Transmission Date: 20150326
  Serious: Yes (Life-Threatening, Hospitalization, Other)
  Sender: FDA-Public Use
  Company Number: FR-UCBSA-2014011747

PATIENT
  Age: 76 Year
  Sex: Female

DRUGS (12)
  1. VANCOMYCIN [Suspect]
     Active Substance: VANCOMYCIN
     Indication: SCAR
     Dosage: 1 G, 2X/DAY (BID)
     Route: 042
     Dates: start: 20140611, end: 20140730
  2. RIFADINE [Suspect]
     Active Substance: RIFAMPIN
     Dosage: 600 MG, 2X/DAY (BID)
     Dates: start: 20140617, end: 20140730
  3. LOVENOX [Suspect]
     Active Substance: ENOXAPARIN SODIUM
     Dosage: UNK
     Route: 058
     Dates: start: 20140608, end: 20140731
  4. PARACETAMOL [Concomitant]
     Active Substance: ACETAMINOPHEN
     Indication: PAIN
  5. TAVANIC [Concomitant]
     Active Substance: LEVOFLOXACIN
     Indication: LUNG DISORDER
     Dosage: UNK DOSE
     Dates: start: 20140713, end: 20140721
  6. KEPPRA [Suspect]
     Active Substance: LEVETIRACETAM
     Indication: CONVULSION PROPHYLAXIS
     Dosage: UNK
     Route: 048
     Dates: start: 20140611, end: 20140731
  7. LYRICA [Suspect]
     Active Substance: PREGABALIN
     Dosage: 115 MG, 2X/DAY (BID)
     Route: 048
     Dates: start: 20140608, end: 20140731
  8. CIFLOX [Concomitant]
     Active Substance: CIPROFLOXACIN
     Dosage: UNK
     Dates: start: 20140704, end: 20140711
  9. INEXIUM [Suspect]
     Active Substance: ESOMEPRAZOLE
     Dosage: UNK
     Route: 048
     Dates: start: 20140608, end: 20140731
  10. CUBICIN [Concomitant]
     Active Substance: DAPTOMYCIN
     Dosage: UNK
     Dates: start: 20140704, end: 20140707
  11. TAZOCILLINE [Concomitant]
     Active Substance: PIPERACILLIN SODIUM\TAZOBACTAM SODIUM
     Indication: SCAR
     Dosage: UNK
     Dates: start: 20140704, end: 20140711
  12. SIMVASTATIN. [Suspect]
     Active Substance: SIMVASTATIN
     Dosage: UNK
     Route: 048
     Dates: start: 20140608, end: 20140731

REACTIONS (4)
  - Drug reaction with eosinophilia and systemic symptoms [Recovering/Resolving]
  - Bacillus infection [Unknown]
  - Staphylococcal skin infection [Unknown]
  - Pneumonia [Unknown]

NARRATIVE: CASE EVENT DATE: 201406
